FAERS Safety Report 6282523-6 (Version None)
Quarter: 2009Q4

REPORT INFORMATION
  Report Type: 
  Country: None (occurrence: None)
  Receive Date: 20090722
  Receipt Date: 20090722
  Transmission Date: 20100525
  Serious: No
  Sender: FDA-Public Use
  Company Number: None

PATIENT
  Age: 54 Year
  Sex: Male

DRUGS (2)
  1. AUGMENTIN [Suspect]
     Dates: start: 20071203, end: 20071214
  2. TYLENOL (CAPLET) [Concomitant]

REACTIONS (2)
  - HEPATITIS [None]
  - LIVER INJURY [None]
